FAERS Safety Report 5896172-2 (Version None)
Quarter: 2008Q3

REPORT INFORMATION
  Report Type: 
  Country: None (occurrence: None)
  Receive Date: 20080924
  Receipt Date: 20080211
  Transmission Date: 20090109
  Serious: Yes (Other)
  Sender: FDA-Public Use
  Company Number: US-ASTRAZENECA-2007UW16555

PATIENT
  Age: 43 Year
  Sex: Female

DRUGS (5)
  1. SEROQUEL [Suspect]
     Indication: NERVOUSNESS
     Dosage: 800-1200 MG
     Route: 048
     Dates: start: 20020301, end: 20060201
  2. SEROQUEL [Suspect]
     Indication: HALLUCINATION
     Dosage: 800-1200 MG
     Route: 048
     Dates: start: 20020301, end: 20060201
  3. SEROQUEL [Suspect]
     Indication: SLEEP DISORDER
     Dosage: 800-1200 MG
     Route: 048
     Dates: start: 20020301, end: 20060201
  4. RISPERDAL [Suspect]
     Dosage: 2-6 MG
     Dates: start: 20030806, end: 20060202
  5. ZYPREXA [Concomitant]
     Dates: start: 20030521, end: 20030806

REACTIONS (2)
  - TARDIVE DYSKINESIA [None]
  - TYPE 2 DIABETES MELLITUS [None]
